FAERS Safety Report 5766929-7 (Version None)
Quarter: 2008Q2

REPORT INFORMATION
  Report Type: 
  Country: None (occurrence: None)
  Receive Date: 20080612
  Receipt Date: 20080606
  Transmission Date: 20081010
  Serious: Yes (Hospitalization)
  Sender: FDA-Public Use
  Company Number: ES-ABBOTT-08P-144-0437559-00

PATIENT
  Age: 71 Year
  Sex: Male

DRUGS (2)
  1. DEPAKENE [Suspect]
     Indication: EPILEPSY
     Route: 048
     Dates: start: 20060519, end: 20060729
  2. DEPAKENE [Suspect]
     Indication: MENINGIOMA

REACTIONS (6)
  - BLOOD BILIRUBIN INCREASED [None]
  - HEPATITIS [None]
  - HEPATOCELLULAR INJURY [None]
  - JAUNDICE [None]
  - LEUKOCYTOCLASTIC VASCULITIS [None]
  - TRANSAMINASES INCREASED [None]
